FAERS Safety Report 13627684 (Version 1)
Quarter: 2017Q2

REPORT INFORMATION
  Report Type: Spontaneous
  Country: US (occurrence: US)
  Receive Date: 20170608
  Receipt Date: 20170608
  Transmission Date: 20170830
  Serious: No
  Sender: FDA-Public Use
  Company Number: US-PERRIGO-16US017197

PATIENT
  Age: 60 Year
  Sex: Male
  Weight: 79.37 kg

DRUGS (1)
  1. MINOXIDIL. [Suspect]
     Active Substance: MINOXIDIL
     Indication: ALOPECIA
     Dosage: TWO CAPFULS, SINGLE
     Route: 061
     Dates: start: 20160524, end: 20160524

REACTIONS (7)
  - Rhinorrhoea [Recovering/Resolving]
  - Incorrect dose administered [Recovered/Resolved]
  - Application site erythema [Recovering/Resolving]
  - Application site dryness [Recovered/Resolved]
  - Drug administered at inappropriate site [Recovered/Resolved]
  - Flushing [Recovering/Resolving]
  - Lacrimation increased [Recovering/Resolving]

NARRATIVE: CASE EVENT DATE: 20160524
